FAERS Safety Report 17258344 (Version 1)
Quarter: 2020Q1

REPORT INFORMATION
  Report Type: Spontaneous
  Country: CA (occurrence: CA)
  Receive Date: 20200110
  Receipt Date: 20200110
  Transmission Date: 20200409
  Serious: Yes (Death, Other)
  Sender: FDA-Public Use
  Company Number: CA-PFIZER INC-2019282908

PATIENT
  Age: 63 Year
  Sex: Female

DRUGS (5)
  1. LETROZOLE. [Concomitant]
     Active Substance: LETROZOLE
     Dosage: UNK
  2. IBRANCE [Suspect]
     Active Substance: PALBOCICLIB
     Dosage: 125 MG, CYCLIC (ONCE A DAY, 21 DAYS/28 DAYS)
     Route: 048
     Dates: start: 20190424, end: 2019
  3. IBRANCE [Suspect]
     Active Substance: PALBOCICLIB
     Dosage: 75 MG, CYCLIC (ONCE DAILY 21 DAYS IN A ROW, STOP FOR 7 DAYS)
     Route: 048
     Dates: start: 20191025
  4. VITAMIN D NOS [Concomitant]
     Active Substance: VITAMIN D NOS
     Dosage: UNK
  5. CALCIUM [Concomitant]
     Active Substance: CALCIUM
     Dosage: UNK

REACTIONS (2)
  - Death [Fatal]
  - Neutropenia [Unknown]

NARRATIVE: CASE EVENT DATE: 2019
